FAERS Safety Report 24220877 (Version 4)
Quarter: 2024Q4

REPORT INFORMATION
  Report Type: Spontaneous
  Country: US (occurrence: US)
  Receive Date: 20240819
  Receipt Date: 20241011
  Transmission Date: 20250115
  Serious: No
  Sender: ROCHE
  Company Number: US-ROCHE-10000058913

PATIENT
  Age: 37 Year
  Sex: Female

DRUGS (1)
  1. ALECENSA [Suspect]
     Active Substance: ALECTINIB HYDROCHLORIDE
     Indication: Lung neoplasm malignant
     Route: 048

REACTIONS (11)
  - Myalgia [Unknown]
  - Constipation [Unknown]
  - Conjunctivitis [Unknown]
  - Oral infection [Unknown]
  - Heart rate increased [Unknown]
  - Nasal congestion [Unknown]
  - Lower respiratory tract congestion [Unknown]
  - Fatigue [Unknown]
  - Product dose omission issue [Unknown]
  - Lip swelling [Recovering/Resolving]
  - Paraesthesia oral [Recovering/Resolving]
